FAERS Safety Report 7256090-4 (Version None)
Quarter: 2011Q1

REPORT INFORMATION
  Report Type: 
  Country: None (occurrence: None)
  Receive Date: 20110129
  Receipt Date: 20100601
  Transmission Date: 20110831
  Serious: Yes (Other)
  Sender: FDA-Public Use
  Company Number: US-ABBOTT-10P-163-0648663-00

PATIENT
  Sex: Female
  Weight: 72.186 kg

DRUGS (12)
  1. ARAVA [Concomitant]
     Indication: RHEUMATOID ARTHRITIS
     Dates: start: 20061026
  2. ARAVA [Concomitant]
     Dates: start: 20070101, end: 20080201
  3. HUMIRA [Suspect]
     Route: 058
     Dates: start: 20070101, end: 20080201
  4. HUMIRA [Suspect]
     Route: 058
     Dates: start: 20080301, end: 20090301
  5. HUMIRA [Suspect]
     Route: 058
     Dates: start: 20090401
  6. ZAMEDA [Concomitant]
     Indication: OSTEOPOROSIS
     Route: 042
     Dates: start: 20040501
  7. HUMIRA [Suspect]
     Route: 058
     Dates: start: 20060101, end: 20070101
  8. ARAVA [Concomitant]
     Dates: start: 20060101, end: 20070101
  9. HUMIRA [Suspect]
     Indication: RHEUMATOID ARTHRITIS
     Route: 058
     Dates: start: 20060123
  10. PREDNISONE [Suspect]
     Indication: SWELLING
     Dates: start: 20090701, end: 20100115
  11. ARAVA [Concomitant]
     Dates: start: 20080301, end: 20090301
  12. ARAVA [Concomitant]
     Dates: start: 20090401

REACTIONS (11)
  - MUSCULOSKELETAL STIFFNESS [None]
  - SWELLING [None]
  - LOCALISED OEDEMA [None]
  - PAIN [None]
  - INJECTION SITE PAIN [None]
  - PAIN IN EXTREMITY [None]
  - LOCALISED INFECTION [None]
  - FOOT FRACTURE [None]
  - WEIGHT DECREASED [None]
  - LOWER LIMB FRACTURE [None]
  - ARTHRALGIA [None]
